FAERS Safety Report 7541924-6 (Version None)
Quarter: 2011Q2

REPORT INFORMATION
  Report Type: 
  Country: None (occurrence: None)
  Receive Date: 20110613
  Receipt Date: 20110607
  Transmission Date: 20111010
  Serious: Yes (Death)
  Sender: FDA-Public Use
  Company Number: GB-TEVA-285431ISR

PATIENT
  Sex: Female

DRUGS (1)
  1. VALPROIC ACID [Suspect]
     Indication: EPILEPSY

REACTIONS (3)
  - CEREBRAL PALSY [None]
  - RENAL FAILURE [None]
  - PANCREATITIS [None]
